FAERS Safety Report 25088703 (Version 1)
Quarter: 2025Q1

REPORT INFORMATION
  Report Type: Report from Study
  Country: CA (occurrence: CA)
  Receive Date: 20250318
  Receipt Date: 20250318
  Transmission Date: 20250409
  Serious: Yes (Hospitalization)
  Sender: TAKEDA
  Company Number: CA-TAKEDA-2024TUS130430

PATIENT
  Sex: Female

DRUGS (6)
  1. HUMAN IMMUNOGLOBULIN G [Suspect]
     Active Substance: HUMAN IMMUNOGLOBULIN G
     Indication: Secondary immunodeficiency
     Dosage: 5 GRAM, 1/WEEK
     Dates: start: 20250216
  2. HUMAN IMMUNOGLOBULIN G [Suspect]
     Active Substance: HUMAN IMMUNOGLOBULIN G
     Indication: Hypogammaglobulinaemia
  3. HUMAN IMMUNOGLOBULIN G [Suspect]
     Active Substance: HUMAN IMMUNOGLOBULIN G
     Indication: Chronic lymphocytic leukaemia
  4. IBRUTINIB [Concomitant]
     Active Substance: IBRUTINIB
     Dosage: 420 MILLIGRAM, QD
  5. ALLOPURINOL [Concomitant]
     Active Substance: ALLOPURINOL
     Dosage: 200 MILLIGRAM, QD
  6. VENETOCLAX [Concomitant]
     Active Substance: VENETOCLAX
     Dosage: 300 MILLIGRAM, QD

REACTIONS (4)
  - Fall [Unknown]
  - Asthenia [Unknown]
  - Back pain [Unknown]
  - Off label use [Unknown]
